FAERS Safety Report 9508080 (Version 1)
Quarter: 2013Q3

REPORT INFORMATION
  Report Type: Spontaneous
  Country: FR (occurrence: FR)
  Receive Date: 20130909
  Receipt Date: 20130909
  Transmission Date: 20140515
  Serious: Yes (Other)
  Sender: FDA-Public Use
  Company Number: PHHY2013FR097257

PATIENT
  Age: 83 Year
  Sex: Male

DRUGS (2)
  1. AMOXICILLIN [Suspect]
  2. ENOXAPARIN [Suspect]

REACTIONS (1)
  - Acute generalised exanthematous pustulosis [Unknown]
